FAERS Safety Report 7207664-8 (Version None)
Quarter: 2011Q1

REPORT INFORMATION
  Report Type: 
  Country: None (occurrence: None)
  Receive Date: 20110103
  Receipt Date: 20101229
  Transmission Date: 20110831
  Serious: Yes (Other)
  Sender: FDA-Public Use
  Company Number: US-PFIZER INC-2010181246

PATIENT
  Sex: Female

DRUGS (1)
  1. ANBESOL [Suspect]
     Indication: NEURALGIA
     Dosage: UNK
     Route: 061

REACTIONS (2)
  - APHAGIA [None]
  - UNEVALUABLE EVENT [None]
